FAERS Safety Report 13903156 (Version 2)
Quarter: 2017Q3

REPORT INFORMATION
  Report Type: Spontaneous
  Country: NO (occurrence: NO)
  Receive Date: 20170824
  Receipt Date: 20170831
  Transmission Date: 20171127
  Serious: Yes (Other)
  Sender: FDA-Public Use
  Company Number: PHHY2017NO121964

PATIENT
  Age: 31 Year
  Sex: Female

DRUGS (5)
  1. AMPHETAMINE [Suspect]
     Active Substance: AMPHETAMINE
     Indication: PRODUCT USED FOR UNKNOWN INDICATION
     Route: 065
  2. CLONAZEPAM. [Suspect]
     Active Substance: CLONAZEPAM
     Indication: SUBSTANCE USE
     Route: 065
  3. GAMMA-HYDROXYBUTYRATE [Suspect]
     Active Substance: 4-HYDROXYBUTANOIC ACID
     Indication: SUBSTANCE USE
     Route: 065
  4. HEROIN [Suspect]
     Active Substance: DIAMORPHINE
     Indication: SUBSTANCE USE
     Route: 065
  5. FENTANYL. [Suspect]
     Active Substance: FENTANYL
     Indication: SUBSTANCE USE
     Route: 065

REACTIONS (7)
  - Heart rate decreased [Unknown]
  - Hypotension [Unknown]
  - Intentional product misuse [Unknown]
  - Body temperature decreased [Unknown]
  - Toxicity to various agents [Unknown]
  - Coma scale abnormal [Unknown]
  - Respiratory rate decreased [Unknown]
